FAERS Safety Report 17076329 (Version 3)
Quarter: 2020Q1

REPORT INFORMATION
  Report Type: Spontaneous
  Country: CL (occurrence: CL)
  Receive Date: 20191126
  Receipt Date: 20200131
  Transmission Date: 20200409
  Serious: Yes (Other)
  Sender: FDA-Public Use
  Company Number: CL-BIOMARINAP-CL-2019-127047

PATIENT
  Age: 14 Year
  Sex: Male
  Weight: 25 kg

DRUGS (4)
  1. NAGLAZYME [Suspect]
     Active Substance: GALSULFASE
     Indication: MUCOPOLYSACCHARIDOSIS VI
     Dosage: 25 MILLIGRAM, QW
     Route: 042
     Dates: start: 2013
  2. CHLORPHENAMINE [Concomitant]
     Active Substance: CHLORPHENIRAMINE MALEATE
     Indication: PRODUCT USED FOR UNKNOWN INDICATION
  3. HYDROCORTISONE. [Concomitant]
     Active Substance: HYDROCORTISONE
     Indication: PRODUCT USED FOR UNKNOWN INDICATION
  4. MONTELUKAST [Concomitant]
     Active Substance: MONTELUKAST SODIUM
     Indication: PRODUCT USED FOR UNKNOWN INDICATION

REACTIONS (8)
  - Obstructive airways disorder [Unknown]
  - Tachypnoea [Unknown]
  - Dyspnoea [Unknown]
  - Secretion discharge [Unknown]
  - Oxygen saturation decreased [Recovered/Resolved]
  - Bronchial secretion retention [Unknown]
  - Respiratory distress [Unknown]
  - Rash [Unknown]

NARRATIVE: CASE EVENT DATE: 20191114
